FAERS Safety Report 6802190-X (Version None)
Quarter: 2010Q2

REPORT INFORMATION
  Report Type: 
  Country: None (occurrence: None)
  Receive Date: 20100629
  Receipt Date: 20080415
  Transmission Date: 20101027
  Serious: No
  Sender: FDA-Public Use
  Company Number: US-PFIZER INC-2004042181

PATIENT
  Sex: Male
  Weight: 68.04 kg

DRUGS (8)
  1. VIAGRA [Suspect]
     Indication: ERECTILE DYSFUNCTION
     Route: 048
     Dates: start: 20030701
  2. VIAGRA [Suspect]
  3. NIFEDIPINE [Concomitant]
     Route: 065
  4. DUTASTERIDE [Concomitant]
     Route: 065
  5. ACETYLSALICYLIC ACID [Concomitant]
     Route: 065
  6. CENTRUM A TO ZINC [Concomitant]
     Route: 065
  7. TOCOPHEROL CONCENTRATE CAP [Concomitant]
     Route: 065
  8. ASCORBIC ACID [Concomitant]
     Route: 065

REACTIONS (4)
  - DRUG INEFFECTIVE [None]
  - HEADACHE [None]
  - NASAL CONGESTION [None]
  - VISION BLURRED [None]
